FAERS Safety Report 16477929 (Version 1)
Quarter: 2019Q2

REPORT INFORMATION
  Report Type: Report from Study
  Country: US (occurrence: US)
  Receive Date: 20190626
  Receipt Date: 20190626
  Transmission Date: 20190711
  Serious: Yes (Other)
  Sender: FDA-Public Use
  Company Number: US-ACCORD-134674

PATIENT
  Age: 70 Year
  Sex: Male

DRUGS (1)
  1. METHOTREXATE. [Suspect]
     Active Substance: METHOTREXATE
     Indication: RETINOPATHY PROLIFERATIVE
     Dosage: DOSE: 100 UG/0.05 ML?5 INTRAVITREAL INJECTIONS EVERY 2 WEEKS

REACTIONS (2)
  - Punctate keratitis [Recovered/Resolved]
  - Off label use [Unknown]
